FAERS Safety Report 11212688 (Version 1)
Quarter: 2015Q2

REPORT INFORMATION
  Report Type: Spontaneous
  Country: US (occurrence: US)
  Receive Date: 20150623
  Receipt Date: 20150623
  Transmission Date: 20150821
  Serious: No
  Sender: FDA-Public Use
  Company Number: US-BAYER-2015-361851

PATIENT
  Age: 68 Year
  Sex: Female
  Weight: 81 kg

DRUGS (10)
  1. OXYTROL FOR WOMEN [Suspect]
     Active Substance: OXYBUTYNIN
     Indication: HYPERTONIC BLADDER
     Dosage: 1 DF, UNK
     Route: 061
     Dates: start: 20150614, end: 20150617
  2. MAGNESIUM [Concomitant]
     Active Substance: MAGNESIUM
  3. FOLIC ACID. [Concomitant]
     Active Substance: FOLIC ACID
  4. STOOL SOFTENER [Concomitant]
     Active Substance: DOCUSATE CALCIUM
  5. ENBREL [Concomitant]
     Active Substance: ETANERCEPT
  6. COENZYME Q10 [Concomitant]
     Active Substance: UBIDECARENONE
  7. VITAMIN C [Concomitant]
     Active Substance: ASCORBIC ACID
  8. VITAMIN D3 [Concomitant]
     Active Substance: CHOLECALCIFEROL
  9. METHOTREXATE [Concomitant]
     Active Substance: METHOTREXATE
  10. OMEPRAZOLE. [Concomitant]
     Active Substance: OMEPRAZOLE

REACTIONS (2)
  - Rash morbilliform [Not Recovered/Not Resolved]
  - Rash erythematous [Not Recovered/Not Resolved]

NARRATIVE: CASE EVENT DATE: 20150617
